FAERS Safety Report 18836478 (Version 1)
Quarter: 2021Q1

REPORT INFORMATION
  Report Type: Spontaneous
  Country: CZ (occurrence: CZ)
  Receive Date: 20210203
  Receipt Date: 20210203
  Transmission Date: 20210419
  Serious: Yes (Life-Threatening, Other)
  Sender: FDA-Public Use
  Company Number: CZ-ROCHE-2761722

PATIENT
  Age: 37 Year
  Sex: Male

DRUGS (1)
  1. RIVOTRIL [Suspect]
     Active Substance: CLONAZEPAM
     Indication: PRODUCT USED FOR UNKNOWN INDICATION
     Dosage: RECOMMENDED DOSAGE RIVOTRIL 2MG 3X1 TABLET DAILY. HOWEVER THERE IS A SUSPICION FOR ABUSE.
     Route: 048

REACTIONS (5)
  - Substance abuse [Unknown]
  - Apathy [Unknown]
  - Depressed level of consciousness [Unknown]
  - Bradykinesia [Unknown]
  - Cognitive disorder [Unknown]

NARRATIVE: CASE EVENT DATE: 2020
